FAERS Safety Report 5023519-1 (Version None)
Quarter: 2006Q2

REPORT INFORMATION
  Report Type: 
  Country: None (occurrence: None)
  Receive Date: 20060612
  Receipt Date: 20060531
  Transmission Date: 20061013
  Serious: Yes (Other)
  Sender: FDA-Public Use
  Company Number: 25071

PATIENT
  Sex: Female
  Weight: 3 kg

DRUGS (2)
  1. COMBIVIR [Suspect]
     Dosage: 2U PER DAY
     Dates: start: 20051128
  2. KALETRA [Suspect]
     Dosage: 6U PER DAY
     Dates: start: 20051128

REACTIONS (2)
  - CONGENITAL ANOMALY [None]
  - DRUG EXPOSURE DURING PREGNANCY [None]
